FAERS Safety Report 20887961 (Version 1)
Quarter: 2022Q2

REPORT INFORMATION
  Report Type: Spontaneous
  Country: GB (occurrence: GB)
  Receive Date: 20220529
  Receipt Date: 20220529
  Transmission Date: 20220721
  Serious: Yes (Other)
  Sender: FDA-Public Use
  Company Number: GB-MHRA-TPP42306957C7232710YC1652450692969

PATIENT
  Age: 6 Year
  Sex: Male
  Weight: 29 kg

DRUGS (3)
  1. CEPHALEXIN [Suspect]
     Active Substance: CEPHALEXIN
     Indication: Ill-defined disorder
     Dosage: UNK
     Route: 065
     Dates: start: 20220513
  2. CEPHALEXIN [Concomitant]
     Active Substance: CEPHALEXIN
     Indication: Ill-defined disorder
     Dosage: UNK (1X5ML SPOON 3 TIMES/DAY)
     Route: 065
     Dates: start: 20220512
  3. LANSOPRAZOLE [Concomitant]
     Active Substance: LANSOPRAZOLE
     Indication: Ill-defined disorder
     Dosage: UNK (1 ON ALTERNATE DAYS)
     Route: 065
     Dates: start: 20220114

REACTIONS (1)
  - Rash macular [Recovering/Resolving]

NARRATIVE: CASE EVENT DATE: 20220513
